FAERS Safety Report 10670186 (Version 2)
Quarter: 2015Q1

REPORT INFORMATION
  Report Type: Report from Study
  Country: US (occurrence: US)
  Receive Date: 20141223
  Receipt Date: 20150115
  Transmission Date: 20150720
  Serious: Yes (Death, Life-Threatening, Hospitalization)
  Sender: FDA-Public Use
  Company Number: US-BIOGENIDEC-2014BI130538

PATIENT
  Age: 54 Year
  Sex: Female
  Weight: 56 kg

DRUGS (11)
  1. MEDROXYPROGESTERONE [Concomitant]
     Active Substance: MEDROXYPROGESTERONE
  2. PRAMIPEXOLE [Concomitant]
     Active Substance: PRAMIPEXOLE
  3. TYSABRI [Suspect]
     Active Substance: NATALIZUMAB
     Indication: MULTIPLE SCLEROSIS
     Route: 042
     Dates: start: 20091119, end: 20141017
  4. ASPIRIN. [Concomitant]
     Active Substance: ASPIRIN
  5. ESTRADIOL. [Concomitant]
     Active Substance: ESTRADIOL
  6. LEVOTHYROXINE [Concomitant]
     Active Substance: LEVOTHYROXINE
  7. TYSABRI [Suspect]
     Active Substance: NATALIZUMAB
     Indication: PRODUCT USE ISSUE
     Route: 042
     Dates: start: 20091119, end: 20141017
  8. LYRICA [Concomitant]
     Active Substance: PREGABALIN
  9. BACLOFEN. [Concomitant]
     Active Substance: BACLOFEN
  10. AMPYRA [Concomitant]
     Active Substance: DALFAMPRIDINE
  11. PILOCARPINE [Concomitant]
     Active Substance: PILOCARPINE

REACTIONS (4)
  - Urinary tract infection [Unknown]
  - Product use issue [Unknown]
  - Progressive multifocal leukoencephalopathy [Fatal]
  - Pneumonia aspiration [Fatal]

NARRATIVE: CASE EVENT DATE: 20141209
